FAERS Safety Report 8005484-8 (Version None)
Quarter: 2011Q4

REPORT INFORMATION
  Report Type: 
  Country: None (occurrence: None)
  Receive Date: 20111223
  Receipt Date: 20111213
  Transmission Date: 20120403
  Serious: Yes (Other)
  Sender: FDA-Public Use
  Company Number: PHHY2011FR101773

PATIENT
  Sex: Male
  Weight: 70 kg

DRUGS (8)
  1. AFINITOR [Suspect]
     Indication: METASTASES TO KIDNEY
     Dosage: 10 MG, DAILY
     Dates: start: 20110722, end: 20110913
  2. LEVEMIR [Concomitant]
  3. SECTRAL [Concomitant]
  4. ATORVASTATIN CALCIUM [Concomitant]
  5. PREVISCAN [Concomitant]
  6. NOVORAPID [Concomitant]
  7. TRUSOPT [Concomitant]
  8. OMEPRAZOLE [Concomitant]

REACTIONS (15)
  - RESPIRATORY RATE INCREASED [None]
  - PLEURAL EFFUSION [None]
  - DYSPNOEA [None]
  - COUGH [None]
  - CHEST DISCOMFORT [None]
  - PULMONARY EMBOLISM [None]
  - FATIGUE [None]
  - MALAISE [None]
  - HYPOXIA [None]
  - LUNG INFILTRATION [None]
  - RESTRICTIVE PULMONARY DISEASE [None]
  - FIBRIN D DIMER INCREASED [None]
  - INTERSTITIAL LUNG DISEASE [None]
  - PLEURAL DISORDER [None]
  - HYPOCAPNIA [None]
